FAERS Safety Report 18529406 (Version 2)
Quarter: 2021Q1

REPORT INFORMATION
  Report Type: Spontaneous
  Country: US (occurrence: US)
  Receive Date: 20201120
  Receipt Date: 20210127
  Transmission Date: 20210419
  Serious: Yes (Other)
  Sender: FDA-Public Use
  Company Number: US-ALLERGAN-2044963US

PATIENT
  Sex: Female

DRUGS (6)
  1. PREDNISOLONE ACETATE, 1.0% [Suspect]
     Active Substance: PREDNISOLONE ACETATE
     Indication: IRITIS
     Route: 061
  2. TRIAMCINOLONE [Suspect]
     Active Substance: TRIAMCINOLONE
     Indication: RETINITIS VIRAL
  3. PREDNISONE. [Suspect]
     Active Substance: PREDNISONE
     Indication: RETINITIS VIRAL
     Dosage: 10 MG, QD
     Route: 048
  4. PREDNISONE. [Suspect]
     Active Substance: PREDNISONE
     Dosage: 60 MG
     Route: 048
  5. IMMUNOGLOBULINS [Concomitant]
     Indication: DERMATOMYOSITIS
     Route: 042
  6. AZATHIOPRINE. [Suspect]
     Active Substance: AZATHIOPRINE
     Indication: DERMATOMYOSITIS

REACTIONS (6)
  - Retinitis viral [Recovered/Resolved]
  - Visual impairment [Not Recovered/Not Resolved]
  - Eye infection toxoplasmal [Recovering/Resolving]
  - Uveitis [Recovering/Resolving]
  - Tractional retinal detachment [Recovering/Resolving]
  - Rhegmatogenous retinal detachment [Recovering/Resolving]
